FAERS Safety Report 16297220 (Version 2)
Quarter: 2022Q1

REPORT INFORMATION
  Report Type: Spontaneous
  Country: US (occurrence: US)
  Receive Date: 20190510
  Receipt Date: 20220209
  Transmission Date: 20220424
  Serious: Yes (Other)
  Sender: FDA-Public Use
  Company Number: PHEH2019US019897

PATIENT
  Age: 58 Year
  Sex: Male

DRUGS (1)
  1. TASIGNA [Suspect]
     Active Substance: NILOTINIB
     Indication: Chronic myeloid leukaemia
     Dosage: 2 DF, BID
     Route: 048
     Dates: start: 201303, end: 201802

REACTIONS (21)
  - Vertebral artery stenosis [Unknown]
  - Cardiac aneurysm [Unknown]
  - Hepatic function abnormal [Unknown]
  - Atrial fibrillation [Unknown]
  - Cerebrovascular accident [Unknown]
  - Dysphagia [Unknown]
  - Ataxia [Unknown]
  - Dysstasia [Unknown]
  - Jaundice [Unknown]
  - Headache [Unknown]
  - Hypertension [Unknown]
  - Injury [Unknown]
  - Vomiting [Unknown]
  - Vertigo [Unknown]
  - Nasopharyngitis [Unknown]
  - Rash [Unknown]
  - Arterial occlusive disease [Unknown]
  - Arteriosclerosis [Unknown]
  - Pain [Unknown]
  - Emotional distress [Unknown]
  - Anxiety [Unknown]

NARRATIVE: CASE EVENT DATE: 20180201
